FAERS Safety Report 9844338 (Version 1)
Quarter: 2014Q1

REPORT INFORMATION
  Report Type: Spontaneous
  Country: US (occurrence: US)
  Receive Date: 20140127
  Receipt Date: 20140127
  Transmission Date: 20141002
  Serious: Yes (Other)
  Sender: FDA-Public Use
  Company Number: US-ROCHE-1338243

PATIENT
  Sex: Female

DRUGS (1)
  1. CLONAZEPAM [Suspect]
     Indication: EPILEPSY
     Dosage: INCREMENTS OF 0.5 MG WERE ADDED EVERY FEW DAYS UNTIL MAXIRNAL TOLERATED DOSE LEVEL WAS REACHED
     Route: 065

REACTIONS (1)
  - Precocious puberty [Unknown]
